FAERS Safety Report 9417974 (Version 1)
Quarter: 2013Q3

REPORT INFORMATION
  Report Type: Spontaneous
  Country: US (occurrence: US)
  Receive Date: 20130724
  Receipt Date: 20130724
  Transmission Date: 20140515
  Serious: No
  Sender: FDA-Public Use
  Company Number: US-BAUSCH-BL-2012-000969

PATIENT
  Age: 23 Year
  Sex: Female

DRUGS (1)
  1. OPCON-A [Suspect]
     Indication: INADEQUATE LUBRICATION
     Dosage: ONCE; TO LUBRICATE CONTACT LENS
     Route: 050
     Dates: start: 20120918, end: 20120918

REACTIONS (2)
  - Off label use [Not Recovered/Not Resolved]
  - Mydriasis [Not Recovered/Not Resolved]
